FAERS Safety Report 20727147 (Version 1)
Quarter: 2022Q2

REPORT INFORMATION
  Report Type: Spontaneous
  Country: US (occurrence: US)
  Receive Date: 20220419
  Receipt Date: 20220419
  Transmission Date: 20220720
  Serious: No
  Sender: FDA-Public Use
  Company Number: US-PFIZER INC-202101185311

PATIENT
  Age: 59 Year
  Sex: Female

DRUGS (1)
  1. XELJANZ [Suspect]
     Active Substance: TOFACITINIB CITRATE
     Dosage: 5 MG

REACTIONS (9)
  - Abdominal discomfort [Unknown]
  - Decreased appetite [Unknown]
  - Arthralgia [Unknown]
  - Joint stiffness [Unknown]
  - Insomnia [Unknown]
  - Depression [Unknown]
  - Illness [Unknown]
  - Vomiting [Unknown]
  - Diarrhoea [Unknown]
